FAERS Safety Report 10385264 (Version 1)
Quarter: 2014Q3

REPORT INFORMATION
  Report Type: Spontaneous
  Country: US (occurrence: None)
  Receive Date: 20140813
  Receipt Date: 20140813
  Transmission Date: 20150326
  Serious: No
  Sender: FDA-Public Use
  Company Number: None

PATIENT
  Age: 80 Year
  Sex: Male
  Weight: 70.76 kg

DRUGS (1)
  1. CEPHALOSPORIN [Suspect]
     Active Substance: UNSPECIFIED INGREDIENT
     Indication: ENDODONTIC PROCEDURE
     Dosage: 1/DAY   ONCE DAILY TAKEN BY MOUTH
     Route: 048
     Dates: start: 20140630, end: 20140707

REACTIONS (3)
  - Diarrhoea [None]
  - Blood urine [None]
  - Palpitations [None]

NARRATIVE: CASE EVENT DATE: 20140630
